FAERS Safety Report 6838465-8 (Version None)
Quarter: 2010Q3

REPORT INFORMATION
  Report Type: 
  Country: None (occurrence: None)
  Receive Date: 20100713
  Receipt Date: 20070613
  Transmission Date: 20110219
  Serious: No
  Sender: FDA-Public Use
  Company Number: US-PFIZER INC-2007049983

PATIENT
  Sex: Female

DRUGS (2)
  1. CHANTIX [Suspect]
     Indication: SMOKING CESSATION THERAPY
  2. TRYPTOPHAN, L- [Concomitant]
     Indication: INSOMNIA

REACTIONS (3)
  - DYSPEPSIA [None]
  - INSOMNIA [None]
  - NAUSEA [None]
